FAERS Safety Report 4299149-6 (Version None)
Quarter: 2004Q1

REPORT INFORMATION
  Report Type: 
  Country: None (occurrence: None)
  Receive Date: 20040217
  Receipt Date: 20040127
  Transmission Date: 20041129
  Serious: Yes (Hospitalization, Other)
  Sender: FDA-Public Use
  Company Number: US064371

PATIENT
  Age: 51 Year
  Sex: Male

DRUGS (5)
  1. ETANERCEPT [Suspect]
     Indication: PSORIASIS
     Dosage: 50 MG, 1 IN 1 WEEKS, SC
     Route: 058
     Dates: start: 20030329
  2. PAROXETINE HCL [Concomitant]
  3. DEXTROPROPOXYPHENE NAPSILATE W/ACETAMINOPHEN [Concomitant]
  4. ASPIRIN [Concomitant]
  5. ATORVASTATIN CALCIUM [Concomitant]

REACTIONS (2)
  - CARDIOMYOPATHY [None]
  - CATHETER SITE HAEMORRHAGE [None]
